FAERS Safety Report 8295035-5 (Version None)
Quarter: 2012Q2

REPORT INFORMATION
  Report Type: 
  Country: None (occurrence: None)
  Receive Date: 20120418
  Receipt Date: 20120411
  Transmission Date: 20120825
  Serious: Yes (Hospitalization, Other)
  Sender: FDA-Public Use
  Company Number: US-ELI_LILLY_AND_COMPANY-US201204005014

PATIENT
  Age: 71 Year
  Sex: Male

DRUGS (5)
  1. ACE INHIBITORS [Concomitant]
  2. EFFIENT [Suspect]
     Indication: STENT PLACEMENT
     Dosage: 10 MG, QD
     Dates: start: 20120301
  3. METFORMIN HCL [Concomitant]
  4. ASPIRIN [Concomitant]
     Dosage: 81 MG, QD
  5. BETA BLOCKING AGENTS [Concomitant]

REACTIONS (2)
  - UPPER GASTROINTESTINAL HAEMORRHAGE [None]
  - OESOPHAGEAL RUPTURE [None]
